FAERS Safety Report 4374211-8 (Version None)
Quarter: 2004Q2

REPORT INFORMATION
  Report Type: 
  Country: None (occurrence: None)
  Receive Date: 20040604
  Receipt Date: 20040520
  Transmission Date: 20050107
  Serious: Yes (Hospitalization, Other)
  Sender: FDA-Public Use
  Company Number: USA-2003-0010853

PATIENT
  Age: 53 Year
  Sex: Female
  Weight: 74.8 kg

DRUGS (29)
  1. OXYCONTIN [Suspect]
     Indication: PAIN
     Dosage: SEE IMAGE
     Route: 048
     Dates: start: 20011211, end: 20020304
  2. OXYCONTIN [Suspect]
     Indication: PAIN
     Dosage: SEE IMAGE
     Route: 048
     Dates: end: 20030901
  3. OXYCONTIN [Suspect]
     Indication: PAIN
     Dosage: SEE IMAGE
     Route: 048
     Dates: start: 20020304
  4. OXYCODONE HCL [Concomitant]
  5. AMBIEN [Concomitant]
  6. VALIUM [Concomitant]
  7. ZANAFLEX [Concomitant]
  8. SEREVENT (SALMETERL XINAFOATE) [Concomitant]
  9. ATROVENT (IPRATROPIUIM BROMIDE) [Concomitant]
  10. FLOVENT [Concomitant]
  11. COMBIVENT [Concomitant]
  12. ALBUTEROL [Concomitant]
  13. TRENTAL [Concomitant]
  14. MILK THISTLE [Concomitant]
  15. PIPERACILLIN SODIUIM W /TAZOBACTAM SODIUM (PIPERACILLIN SODIUM, TAZOBA [Concomitant]
  16. VANCOMYCIN [Concomitant]
  17. POLYTHYLENE GLUCOL (MACROGOL) [Concomitant]
  18. FERROUS SULFATE TAB [Concomitant]
  19. NIZATIDINE [Concomitant]
  20. DOCUSATE CALCIUM (DOCUSATE CALCIUM) [Concomitant]
  21. BISACODYL [Concomitant]
  22. MAALOX (MAGNESIUM HYDROXIDE, ALUMINIUM HYDROXIDE GEL) [Concomitant]
  23. BENADRYL [Concomitant]
  24. NYSTATIN [Concomitant]
  25. ESTAZOLAM [Concomitant]
  26. PROMETHAZINE [Concomitant]
  27. SOMA [Concomitant]
  28. RESTORIL [Concomitant]
  29. PREVACID [Concomitant]

REACTIONS (43)
  - ABDOMINAL PAIN [None]
  - ANXIETY [None]
  - ATELECTASIS [None]
  - BLOOD CULTURE POSITIVE [None]
  - BLOOD PRESSURE DECREASED [None]
  - CELLULITIS [None]
  - CONDITION AGGRAVATED [None]
  - CONFUSIONAL STATE [None]
  - CONSTIPATION [None]
  - DECREASED APPETITE [None]
  - DEPRESSION [None]
  - DRUG DEPENDENCE [None]
  - DRUG WITHDRAWAL SYNDROME [None]
  - HAEMANGIOMA OF LIVER [None]
  - HAEMORRHAGE [None]
  - HYPONATRAEMIA [None]
  - HYPOXIA [None]
  - ILEUS PARALYTIC [None]
  - INADEQUATE ANALGESIA [None]
  - INCISIONAL DRAINAGE [None]
  - INSOMNIA [None]
  - JAUNDICE [None]
  - KLEBSIELLA SEPSIS [None]
  - MOBILITY DECREASED [None]
  - MUSCULAR WEAKNESS [None]
  - NEUROPATHIC PAIN [None]
  - PAIN [None]
  - PALLOR [None]
  - PANCREATIC CARCINOMA [None]
  - PNEUMONIA [None]
  - PNEUMONIA ASPIRATION [None]
  - POST PROCEDURAL COMPLICATION [None]
  - PRURITUS [None]
  - PULMONARY GRANULOMA [None]
  - RASH MACULAR [None]
  - RESPIRATORY DISTRESS [None]
  - SHOCK [None]
  - SOMNOLENCE [None]
  - TACHYCARDIA [None]
  - TACHYPNOEA [None]
  - TENOSYNOVITIS [None]
  - URINARY TRACT INFECTION [None]
  - WOUND INFECTION [None]
